FAERS Safety Report 18568674 (Version 2)
Quarter: 2021Q1

REPORT INFORMATION
  Report Type: Spontaneous
  Country: US (occurrence: US)
  Receive Date: 20201202
  Receipt Date: 20210218
  Transmission Date: 20210419
  Serious: No
  Sender: FDA-Public Use
  Company Number: US-GLAXOSMITHKLINE-US2020AMR234344

PATIENT
  Weight: 36.28 kg

DRUGS (2)
  1. ZEJULA [Suspect]
     Active Substance: NIRAPARIB
     Indication: PRODUCT USED FOR UNKNOWN INDICATION
     Dosage: 200 MG, QD
  2. ZEJULA [Suspect]
     Active Substance: NIRAPARIB
     Dosage: 100 MG, QD

REACTIONS (7)
  - Asthenia [Unknown]
  - Red blood cell count decreased [Unknown]
  - Weight increased [Unknown]
  - White blood cell count decreased [Unknown]
  - Fatigue [Unknown]
  - Platelet count decreased [Unknown]
  - Vomiting [Recovered/Resolved]
